FAERS Safety Report 8604610 (Version 2)
Quarter: 2014Q1

REPORT INFORMATION
  Report Type: Spontaneous
  Country: US (occurrence: None)
  Receive Date: 20120323
  Receipt Date: 20130305
  Transmission Date: 20141002
  Serious: Yes (Other)
  Sender: FDA-Public Use
  Company Number: 163-21880-11040947

PATIENT
  Age: 79 Year
  Sex: Male

DRUGS (3)
  1. REVLIMID [Suspect]
     Indication: PLASMA CELL MYELOMA
     Route: 048
     Dates: start: 20110125
  2. ANTIBIOTICS [Concomitant]
  3. AMOXICILLIN [Concomitant]

REACTIONS (4)
  - Influenza like illness [None]
  - Dysgeusia [None]
  - Pyrexia [None]
  - Diarrhoea [None]
